FAERS Safety Report 7755850-0 (Version None)
Quarter: 2011Q3

REPORT INFORMATION
  Report Type: 
  Country: None (occurrence: None)
  Receive Date: 20110915
  Receipt Date: 20110915
  Transmission Date: 20111222
  Serious: Yes (Hospitalization)
  Sender: FDA-Public Use
  Company Number: None

PATIENT
  Age: 70 Year
  Sex: Female
  Weight: 62 kg

DRUGS (11)
  1. CELEBREX [Concomitant]
  2. DOCUSATE SODIUM [Concomitant]
  3. TRAMADOL HCL [Concomitant]
  4. RITUXIMAB 20MG/M(2) COMMERCIAL AGENT UNKNOWN [Suspect]
     Indication: CHRONIC LYMPHOCYTIC LEUKAEMIA
     Dosage: 20MG/M2(2)/DAY 3 X WEEKLY 041
     Dates: start: 20110711
  5. BENADRYL [Concomitant]
  6. TYLENOL-500 [Concomitant]
  7. PENTOSTATIN [Suspect]
     Indication: CHRONIC LYMPHOCYTIC LEUKAEMIA
     Dosage: 2MG/M(2)/DAY DAYS 8 AND 22 MONTH 041
     Dates: start: 20110808
  8. PENTOSTATIN [Suspect]
     Indication: CHRONIC LYMPHOCYTIC LEUKAEMIA
     Dosage: 2MG/M(2)/DAY DAYS 8 AND 22 MONTH 041
     Dates: start: 20110725
  9. CAMPATH [Suspect]
     Indication: CHRONIC LYMPHOCYTIC LEUKAEMIA
     Dosage: 3MG + 10MG 30MG ONCE 3 X WEEKLY 057 057
     Dates: start: 20110713
  10. COMPAZINE [Concomitant]
  11. BACTRIM DS [Concomitant]

REACTIONS (1)
  - PNEUMONIA BACTERIAL [None]
